FAERS Safety Report 8549336-3 (Version None)
Quarter: 2012Q3

REPORT INFORMATION
  Report Type: 
  Country: None (occurrence: None)
  Receive Date: 20120730
  Receipt Date: 20120726
  Transmission Date: 20120928
  Serious: Yes (Hospitalization, Other)
  Sender: FDA-Public Use
  Company Number: AT-AMGEN-AUTSP2012036232

PATIENT
  Sex: Male

DRUGS (1)
  1. ARANESP [Suspect]
     Indication: PRODUCT USED FOR UNKNOWN INDICATION
     Dosage: UNK UNK, Q3WK

REACTIONS (5)
  - SPLENOMEGALY [None]
  - WHITE BLOOD CELL COUNT DECREASED [None]
  - ANAEMIA [None]
  - BLOOD PRODUCT TRANSFUSION DEPENDENT [None]
  - RED BLOOD CELL COUNT DECREASED [None]
